FAERS Safety Report 5520168-3 (Version None)
Quarter: 2007Q4

REPORT INFORMATION
  Report Type: 
  Country: None (occurrence: None)
  Receive Date: 20071116
  Receipt Date: 20071023
  Transmission Date: 20080405
  Serious: No
  Sender: FDA-Public Use
  Company Number: US-BOEHRINGER INGELHEIM PHARMACEUTICALS, INC.-2007-BP-23207BP

PATIENT
  Age: 68 Year
  Sex: Male

DRUGS (5)
  1. FLOMAX [Suspect]
     Indication: BENIGN PROSTATIC HYPERPLASIA
     Route: 048
     Dates: start: 20071022
  2. ALLOPURINOL [Concomitant]
  3. CRESTOR [Concomitant]
  4. TRICHLOR [Concomitant]
  5. ASPIRIN [Concomitant]

REACTIONS (2)
  - NASAL DRYNESS [None]
  - SOMNOLENCE [None]
